FAERS Safety Report 12593896 (Version 1)
Quarter: 2016Q3

REPORT INFORMATION
  Report Type: Spontaneous
  Country: US (occurrence: US)
  Receive Date: 20160726
  Receipt Date: 20160726
  Transmission Date: 20161109
  Serious: Yes (Hospitalization)
  Sender: FDA-Public Use
  Company Number: US-MALLINCKRODT-T201603068

PATIENT
  Age: 20 Year
  Sex: Male

DRUGS (8)
  1. MIRALAX [Concomitant]
     Active Substance: POLYETHYLENE GLYCOL 3350
  2. LORATADINE. [Concomitant]
     Active Substance: LORATADINE
  3. TRAZODONE [Concomitant]
     Active Substance: TRAZODONE HYDROCHLORIDE
  4. MAGNESIUM [Concomitant]
     Active Substance: MAGNESIUM
  5. IBUPROFEN. [Concomitant]
     Active Substance: IBUPROFEN
  6. OXYCODON [Concomitant]
     Active Substance: OXYCODONE
  7. BENZONATATE. [Concomitant]
     Active Substance: BENZONATATE
  8. GABLOFEN [Suspect]
     Active Substance: BACLOFEN
     Indication: MUSCLE SPASTICITY
     Dosage: 274.9 MCG/DAY
     Route: 037
     Dates: end: 20160709

REACTIONS (4)
  - Impaired healing [Recovered/Resolved]
  - Pyrexia [Recovered/Resolved]
  - Implant site discharge [Recovered/Resolved]
  - Implant site infection [Recovered/Resolved]

NARRATIVE: CASE EVENT DATE: 20160628
